FAERS Safety Report 10178241 (Version 1)
Quarter: 2014Q2

REPORT INFORMATION
  Report Type: Spontaneous
  Country: GB (occurrence: GB)
  Receive Date: 20140519
  Receipt Date: 20140519
  Transmission Date: 20141212
  Serious: Yes (Death)
  Sender: FDA-Public Use
  Company Number: GB-BRISTOL-MYERS SQUIBB COMPANY-20744223

PATIENT
  Age: 74 Year
  Sex: Male

DRUGS (1)
  1. BYDUREON [Suspect]
     Indication: TYPE 2 DIABETES MELLITUS
     Dates: start: 201312

REACTIONS (4)
  - Pancreatic carcinoma [Fatal]
  - Weight decreased [Unknown]
  - Nausea [Unknown]
  - Malaise [Unknown]
